FAERS Safety Report 5875684-1 (Version None)
Quarter: 2008Q3

REPORT INFORMATION
  Report Type: 
  Country: None (occurrence: None)
  Receive Date: 20080904
  Receipt Date: 20080825
  Transmission Date: 20090109
  Serious: Yes (Life-Threatening)
  Sender: FDA-Public Use
  Company Number: 2008AP001890

PATIENT
  Age: 73 Year
  Sex: Female

DRUGS (3)
  1. CITALOPRAM HYDROBROMIDE [Suspect]
     Indication: DEPRESSION
     Dosage: 40 MG; QD
  2. FLUCONAZOLE [Suspect]
     Dosage: 100 MG; QD
  3. IFOSFAMIDE [Suspect]

REACTIONS (7)
  - DELIRIUM [None]
  - DISORIENTATION [None]
  - DRUG INTERACTION [None]
  - MOOD ALTERED [None]
  - PSYCHOMOTOR RETARDATION [None]
  - SEROTONIN SYNDROME [None]
  - SOMNOLENCE [None]
